FAERS Safety Report 19112807 (Version 2)
Quarter: 2021Q2

REPORT INFORMATION
  Report Type: Report from Study
  Country: None (occurrence: NZ)
  Receive Date: 20210409
  Receipt Date: 20210430
  Transmission Date: 20210717
  Serious: Yes (Death, Hospitalization, Other)
  Sender: FDA-Public Use
  Company Number: NZ-ABBVIE-21K-118-3852087-00

PATIENT
  Age: 57 Year
  Sex: Female
  Weight: 105 kg

DRUGS (5)
  1. ALLOPURINOL. [Concomitant]
     Active Substance: ALLOPURINOL
     Indication: PROPHYLAXIS
     Route: 048
     Dates: start: 20210316
  2. VENETOCLAX. [Suspect]
     Active Substance: VENETOCLAX
     Indication: ACUTE MYELOID LEUKAEMIA RECURRENT
     Route: 048
     Dates: start: 20210316, end: 2021
  3. VALACICLOVIR [Concomitant]
     Active Substance: VALACYCLOVIR HYDROCHLORIDE
     Indication: ANTIVIRAL PROPHYLAXIS
     Route: 048
     Dates: start: 20210316
  4. METOCLOPRAMIDE. [Concomitant]
     Active Substance: METOCLOPRAMIDE
     Indication: PROPHYLAXIS OF NAUSEA AND VOMITING
     Dosage: THRICE A DAY AS REQUIRED
     Route: 048
     Dates: start: 20210316
  5. ONDANSETRON [Concomitant]
     Active Substance: ONDANSETRON
     Indication: PROPHYLAXIS OF NAUSEA AND VOMITING
     Dosage: THRICE A DAY AS REQUIRED
     Route: 048
     Dates: start: 20210316

REACTIONS (10)
  - Neutropenic sepsis [Fatal]
  - Febrile neutropenia [Unknown]
  - Infection [Fatal]
  - Acute myeloid leukaemia [Fatal]
  - Blast cells [Unknown]
  - Malaise [Unknown]
  - Illness [Unknown]
  - Leukaemia recurrent [Fatal]
  - Asthenia [Unknown]
  - Malaise [Unknown]

NARRATIVE: CASE EVENT DATE: 2021
